FAERS Safety Report 6631774-7 (Version None)
Quarter: 2010Q1

REPORT INFORMATION
  Report Type: 
  Country: None (occurrence: None)
  Receive Date: 20100312
  Receipt Date: 20100301
  Transmission Date: 20100710
  Serious: Yes (Other)
  Sender: FDA-Public Use
  Company Number: US-JNJFOC-20100301010

PATIENT
  Sex: Female
  Weight: 72.58 kg

DRUGS (4)
  1. LEVAQUIN [Suspect]
     Indication: LUNG INFECTION
     Route: 042
  2. LEVAQUIN [Suspect]
     Route: 048
  3. HEART MEDICATION (NOS) [Concomitant]
     Indication: CARDIAC DISORDER
     Route: 048
  4. ANTIHYPERTENSIVE (NOS) [Concomitant]
     Indication: BLOOD PRESSURE
     Route: 048

REACTIONS (5)
  - ARTHROPATHY [None]
  - MALAISE [None]
  - MUSCULOSKELETAL PAIN [None]
  - MUSCULOSKELETAL STIFFNESS [None]
  - ROTATOR CUFF SYNDROME [None]
